FAERS Safety Report 4643610-9 (Version None)
Quarter: 2005Q2

REPORT INFORMATION
  Report Type: 
  Country: None (occurrence: None)
  Receive Date: 20050425
  Receipt Date: 20050120
  Transmission Date: 20051028
  Serious: Yes (Other)
  Sender: FDA-Public Use
  Company Number: DE-JNJFOC-20050105533

PATIENT
  Age: 70 Year
  Sex: Male
  Weight: 80 kg

DRUGS (4)
  1. RISPERDAL CONSTA [Suspect]
     Route: 030
  2. DELIX [Concomitant]
     Route: 049
  3. PAROXAT [Concomitant]
     Route: 049
  4. LOPRESSOR [Concomitant]
     Route: 049

REACTIONS (2)
  - TACHYCARDIA [None]
  - VENTRICULAR EXTRASYSTOLES [None]
